FAERS Safety Report 6534843-5 (Version None)
Quarter: 2010Q1

REPORT INFORMATION
  Report Type: 
  Country: None (occurrence: None)
  Receive Date: 20100112
  Receipt Date: 20100107
  Transmission Date: 20100710
  Serious: Yes (Other)
  Sender: FDA-Public Use
  Company Number: PHEH2010US00501

PATIENT

DRUGS (1)
  1. FEMARA [Suspect]
     Dosage: UNK, UNK
     Route: 065

REACTIONS (1)
  - LAPAROTOMY [None]
